FAERS Safety Report 23678221 (Version 2)
Quarter: 2024Q2

REPORT INFORMATION
  Report Type: Spontaneous
  Country: US (occurrence: US)
  Receive Date: 20240327
  Receipt Date: 20240527
  Transmission Date: 20240715
  Serious: Yes (Other)
  Sender: FDA-Public Use
  Company Number: US-COLGATE PALMOLIVE COMPANY-20240300556

PATIENT
  Age: 78 Year
  Sex: Male

DRUGS (1)
  1. COLGATE OPTIC WHITE STAIN PREVENTION [Suspect]
     Active Substance: SODIUM MONOFLUOROPHOSPHATE
     Indication: Tooth discolouration
     Dosage: USED A SMALL AMOUNT, LIKE A PEA SIZE,QD
     Dates: start: 20240315, end: 20240319

REACTIONS (2)
  - Atrial fibrillation [Recovered/Resolved]
  - Sleep disorder [Recovered/Resolved]

NARRATIVE: CASE EVENT DATE: 20240315
